FAERS Safety Report 7064384-0 (Version None)
Quarter: 2010Q4

REPORT INFORMATION
  Report Type: 
  Country: None (occurrence: None)
  Receive Date: 20101022
  Receipt Date: 20101022
  Transmission Date: 20110411
  Serious: No
  Sender: FDA-Public Use
  Company Number: None

PATIENT
  Sex: Female

DRUGS (1)
  1. OXYCONTIN [Suspect]
     Indication: PAIN
     Dosage: 80 MG B.I.D. PO
     Route: 048
     Dates: start: 20100903, end: 20101001

REACTIONS (4)
  - ABDOMINAL DISTENSION [None]
  - DIARRHOEA [None]
  - NAUSEA [None]
  - PRODUCT FORMULATION ISSUE [None]
